FAERS Safety Report 9143649 (Version 1)
Quarter: 2013Q1

REPORT INFORMATION
  Report Type: Spontaneous
  Country: US (occurrence: US)
  Receive Date: 20130306
  Receipt Date: 20130306
  Transmission Date: 20140127
  Serious: No
  Sender: FDA-Public Use
  Company Number: US-009507513-1303USA001435

PATIENT
  Sex: Female

DRUGS (1)
  1. NUVARING [Suspect]
     Dosage: 1 ROD FOR 3 WEEKS
     Route: 067
     Dates: end: 20130219

REACTIONS (1)
  - Withdrawal bleed [Not Recovered/Not Resolved]
